FAERS Safety Report 6104803-7 (Version None)
Quarter: 2009Q1

REPORT INFORMATION
  Report Type: 
  Country: None (occurrence: None)
  Receive Date: 20090304
  Receipt Date: 20090304
  Transmission Date: 20090719
  Serious: No
  Sender: FDA-Public Use
  Company Number: None

PATIENT
  Age: 28 Year
  Sex: Female
  Weight: 52.1637 kg

DRUGS (2)
  1. LAMOTRIGINE [Suspect]
     Dosage: 300 MGM HS PO
     Route: 048
     Dates: start: 20090227
  2. LAMOTRIGINE [Suspect]
     Dosage: 300 MGM HS PO
     Route: 048
     Dates: start: 20090228

REACTIONS (10)
  - ABDOMINAL PAIN [None]
  - ARTHRALGIA [None]
  - BACK PAIN [None]
  - FACIAL PAIN [None]
  - HEADACHE [None]
  - MYALGIA [None]
  - NECK PAIN [None]
  - PAIN [None]
  - PAIN IN EXTREMITY [None]
  - PRODUCT QUALITY ISSUE [None]
